FAERS Safety Report 20421735 (Version 1)
Quarter: 2022Q1

REPORT INFORMATION
  Report Type: Report from Study
  Country: US (occurrence: US)
  Receive Date: 20220203
  Receipt Date: 20220203
  Transmission Date: 20220424
  Serious: Yes (Hospitalization, Other)
  Sender: FDA-Public Use
  Company Number: US-ABBVIE-22K-163-4261765-00

PATIENT
  Sex: Female

DRUGS (1)
  1. HUMIRA [Suspect]
     Active Substance: ADALIMUMAB
     Indication: Psoriasis
     Route: 058

REACTIONS (5)
  - Hospitalisation [Recovering/Resolving]
  - Loss of consciousness [Recovering/Resolving]
  - Therapeutic product effect decreased [Unknown]
  - Pneumonia [Recovering/Resolving]
  - Mental impairment [Unknown]
